FAERS Safety Report 18109284 (Version 12)
Quarter: 2021Q1

REPORT INFORMATION
  Report Type: Spontaneous
  Country: US (occurrence: US)
  Receive Date: 20200804
  Receipt Date: 20210331
  Transmission Date: 20210419
  Serious: Yes (Hospitalization, Other)
  Sender: FDA-Public Use
  Company Number: US-GLAXOSMITHKLINE-US2020AMR147785

PATIENT
  Age: 48 Year
  Sex: Female

DRUGS (1)
  1. NUCALA [Suspect]
     Active Substance: MEPOLIZUMAB
     Indication: HYPEREOSINOPHILIC SYNDROME
     Dosage: UNK
     Route: 058
     Dates: start: 2015

REACTIONS (41)
  - Gastric ulcer [Unknown]
  - Dyspnoea [Not Recovered/Not Resolved]
  - Dysarthria [Unknown]
  - Emotional distress [Unknown]
  - Loss of personal independence in daily activities [Unknown]
  - Heart valve incompetence [Not Recovered/Not Resolved]
  - Cardiac failure [Unknown]
  - Muscle spasms [Unknown]
  - Gait disturbance [Recovered/Resolved]
  - Dysgeusia [Unknown]
  - Cardiac operation [Unknown]
  - Cough [Unknown]
  - Pharyngeal ulceration [Unknown]
  - Vomiting [Unknown]
  - Weight fluctuation [Not Recovered/Not Resolved]
  - Off label use [Unknown]
  - Pneumonia [Unknown]
  - Neck surgery [Unknown]
  - Somnolence [Unknown]
  - Colonoscopy [Unknown]
  - Product dose omission issue [Unknown]
  - Fatigue [Not Recovered/Not Resolved]
  - Oropharyngeal discomfort [Unknown]
  - Tongue disorder [Unknown]
  - Condition aggravated [Unknown]
  - Coronavirus test positive [Not Recovered/Not Resolved]
  - Pulmonary oedema [Unknown]
  - Cardiac disorder [Unknown]
  - Throat clearing [Unknown]
  - Insomnia [Unknown]
  - Sinusitis [Unknown]
  - Chest pain [Unknown]
  - Middle insomnia [Unknown]
  - Dry mouth [Unknown]
  - Swelling [Unknown]
  - SARS-CoV-2 test negative [Recovered/Resolved]
  - Pneumothorax [Unknown]
  - Pain [Unknown]
  - Cardiomegaly [Unknown]
  - Asthenia [Unknown]
  - Product use issue [Unknown]

NARRATIVE: CASE EVENT DATE: 2020
